FAERS Safety Report 10916288 (Version 1)
Quarter: 2015Q1

REPORT INFORMATION
  Report Type: Spontaneous
  Country: US (occurrence: None)
  Receive Date: 20150311
  Receipt Date: 20150311
  Transmission Date: 20150721
  Serious: Yes (Other)
  Sender: FDA-Public Use
  Company Number: None

PATIENT
  Age: 47 Year
  Sex: Male

DRUGS (1)
  1. SPRYCEL [Suspect]
     Active Substance: DASATINIB
     Indication: PLASMA CELL MYELOMA
     Route: 048
     Dates: start: 20150220

REACTIONS (6)
  - Nausea [None]
  - Vomiting [None]
  - Influenza like illness [None]
  - Chills [None]
  - Pain [None]
  - Diarrhoea [None]

NARRATIVE: CASE EVENT DATE: 20150304
